FAERS Safety Report 6722813-3 (Version None)
Quarter: 2010Q2

REPORT INFORMATION
  Report Type: 
  Country: None (occurrence: None)
  Receive Date: 20100512
  Receipt Date: 20100512
  Transmission Date: 20101027
  Serious: Yes (Hospitalization)
  Sender: FDA-Public Use
  Company Number: None

PATIENT
  Sex: Male
  Weight: 75 kg

DRUGS (8)
  1. NATALIZUMAB 300 MG/15ML ELAN PHARMACEUTICALS [Suspect]
     Indication: MULTIPLE SCLEROSIS
     Dosage: 300 MG ONCE IV
     Route: 042
     Dates: start: 20100510, end: 20100510
  2. BENADRYL [Concomitant]
  3. ACETAMINOPHEN [Concomitant]
  4. BACLOFEN [Concomitant]
  5. CITALOPRAM [Concomitant]
  6. IBUPROFEN [Concomitant]
  7. TOLTERODINE [Concomitant]
  8. MODAFINIL [Concomitant]

REACTIONS (7)
  - BURNING SENSATION [None]
  - COORDINATION ABNORMAL [None]
  - DIZZINESS [None]
  - DYSPNOEA [None]
  - NAUSEA [None]
  - SENSORY LOSS [None]
  - VISION BLURRED [None]
